FAERS Safety Report 8616710-6 (Version None)
Quarter: 2012Q3

REPORT INFORMATION
  Report Type: 
  Country: None (occurrence: None)
  Receive Date: 20120823
  Receipt Date: 20120817
  Transmission Date: 20120928
  Serious: Yes (Death, Other)
  Sender: FDA-Public Use
  Company Number: BR-009507513-1203BRA00053

PATIENT

DRUGS (3)
  1. RIBAVIRIN [Suspect]
     Dosage: UNK
  2. VICTRELIS [Suspect]
     Dosage: UNK
     Dates: start: 20120201
  3. INTERFERON (UNSPECIFIED) [Concomitant]

REACTIONS (11)
  - SEPTIC SHOCK [None]
  - URINE OUTPUT DECREASED [None]
  - DIARRHOEA [None]
  - NAUSEA [None]
  - HEADACHE [None]
  - PNEUMONIA [None]
  - BLOOD PRESSURE INADEQUATELY CONTROLLED [None]
  - UPPER GASTROINTESTINAL HAEMORRHAGE [None]
  - DRUG INEFFECTIVE [None]
  - VARICES OESOPHAGEAL [None]
  - ACUTE RESPIRATORY FAILURE [None]
